FAERS Safety Report 24711751 (Version 1)
Quarter: 2024Q4

REPORT INFORMATION
  Report Type: Spontaneous
  Country: DK (occurrence: DK)
  Receive Date: 20241209
  Receipt Date: 20241209
  Transmission Date: 20250115
  Serious: Yes (Life-Threatening, Hospitalization, Other)
  Sender: CIPLA
  Company Number: DK-DKMA-31002667

PATIENT

DRUGS (2)
  1. RIVAROXABAN [Suspect]
     Active Substance: RIVAROXABAN
     Indication: Thrombosis prophylaxis
     Dosage: 15 MILLIGRAM, QD (FILM COATED TABLET)
     Route: 048
     Dates: start: 20240919, end: 20241004
  2. IBUPROFEN [Concomitant]
     Active Substance: IBUPROFEN
     Indication: Inflammation
     Dosage: 400 MILLIGRAM, 0.33 TIMES IN A DAY
     Route: 065
     Dates: start: 20221229

REACTIONS (5)
  - Cerebral haemorrhage [Recovering/Resolving]
  - Coordination abnormal [Unknown]
  - Disturbance in attention [Unknown]
  - Facial paresis [Unknown]
  - Monoparesis [Unknown]

NARRATIVE: CASE EVENT DATE: 20241003
